FAERS Safety Report 25904107 (Version 1)
Quarter: 2025Q4

REPORT INFORMATION
  Report Type: Spontaneous
  Country: US (occurrence: US)
  Receive Date: 20251010
  Receipt Date: 20251010
  Transmission Date: 20260119
  Serious: No
  Sender: ROCHE
  Company Number: US-ROCHE-10000405636

PATIENT
  Sex: Male

DRUGS (1)
  1. XOLAIR PFS [Suspect]
     Active Substance: OMALIZUMAB
     Indication: Food allergy
     Dosage: 150MG/ML
     Route: 058
     Dates: start: 202506

REACTIONS (1)
  - Rash [Unknown]
